FAERS Safety Report 8840456 (Version 2)
Quarter: 2015Q1

REPORT INFORMATION
  Report Type: Report from Study
  Country: US (occurrence: US)
  Receive Date: 20121015
  Receipt Date: 20150204
  Transmission Date: 20150721
  Serious: Yes (Other)
  Sender: FDA-Public Use
  Company Number: US-ROCHE-1135563

PATIENT
  Age: 83 Year
  Sex: Female
  Weight: 83.99 kg

DRUGS (8)
  1. NAPROXEN. [Suspect]
     Active Substance: NAPROXEN
     Indication: PRODUCT USED FOR UNKNOWN INDICATION
     Route: 065
  2. RITUXAN [Suspect]
     Active Substance: RITUXIMAB
     Indication: OFF LABEL USE
  3. LANOXIN [Concomitant]
     Active Substance: DIGOXIN
     Route: 065
  4. FERROUS SULFATE [Concomitant]
     Active Substance: FERROUS SULFATE\FERROUS SULFATE, DRIED
  5. HYZAAR [Concomitant]
     Active Substance: HYDROCHLOROTHIAZIDE\LOSARTAN POTASSIUM
     Dosage: 50 / 125
     Route: 065
  6. ALEVE [Concomitant]
     Active Substance: NAPROXEN SODIUM
  7. RITUXAN [Suspect]
     Active Substance: RITUXIMAB
     Indication: WALDENSTROM^S MACROGLOBULINAEMIA
     Route: 042
  8. BUMEX [Concomitant]
     Active Substance: BUMETANIDE
     Route: 065

REACTIONS (13)
  - Cardiac failure congestive [Unknown]
  - Off label use [Unknown]
  - Muscular weakness [Unknown]
  - Arrhythmia [Unknown]
  - Weight increased [Unknown]
  - Hepatomegaly [Unknown]
  - Respiratory tract infection [Unknown]
  - Haemoglobin decreased [Unknown]
  - Splenomegaly [Unknown]
  - Transfusion reaction [Unknown]
  - Anaemia [Unknown]
  - Asthenia [Unknown]
  - Feeling abnormal [Unknown]

NARRATIVE: CASE EVENT DATE: 20010813
